FAERS Safety Report 7008772-7 (Version None)
Quarter: 2010Q3

REPORT INFORMATION
  Report Type: 
  Country: None (occurrence: None)
  Receive Date: 20100921
  Receipt Date: 20100907
  Transmission Date: 20110219
  Serious: Yes (Other)
  Sender: FDA-Public Use
  Company Number: FKO201000387

PATIENT
  Age: 15 Month
  Sex: Female

DRUGS (6)
  1. METHOTREXATE [Suspect]
     Indication: ACUTE LYMPHOCYTIC LEUKAEMIA
     Dosage: (8 MG)
  2. PREDNISOLONE [Concomitant]
  3. CHLOROQUINE (CHLOROQUINE) (CHLOROQUINE) [Concomitant]
  4. VINCRISTINE [Concomitant]
  5. AMIKACIN [Concomitant]
  6. PIPERACILLIN/TAZOBACTAM (PIPERACILLIN W/TAZOBACTAM) (PIPERACILLIN W/TA [Concomitant]

REACTIONS (13)
  - ABSCESS [None]
  - ANAEMIA [None]
  - ANAL ABSCESS [None]
  - BLOOD ALKALINE PHOSPHATASE INCREASED [None]
  - CULTURE STOOL POSITIVE [None]
  - DIARRHOEA [None]
  - ECCHYMOSIS [None]
  - HEPATOSPLENOMEGALY [None]
  - PALLOR [None]
  - PETECHIAE [None]
  - PLATELET COUNT DECREASED [None]
  - PSEUDOMONAS INFECTION [None]
  - VIITH NERVE PARALYSIS [None]
